FAERS Safety Report 7010865-5 (Version None)
Quarter: 2010Q3

REPORT INFORMATION
  Report Type: 
  Country: None (occurrence: None)
  Receive Date: 20100923
  Receipt Date: 20100923
  Transmission Date: 20110219
  Serious: Yes (Hospitalization)
  Sender: FDA-Public Use
  Company Number: None

PATIENT
  Age: 44 Year
  Sex: Male
  Weight: 72 kg

DRUGS (1)
  1. VANCOMYCIN [Suspect]
     Indication: ABSCESS
     Dosage: 1 G ONCE IV
     Route: 042
     Dates: start: 20100712, end: 20100712

REACTIONS (3)
  - PAIN [None]
  - RASH [None]
  - SWELLING [None]
